FAERS Safety Report 7808951 (Version 4)
Quarter: 2013Q4

REPORT INFORMATION
  Report Type: Spontaneous
  Country: US (occurrence: US)
  Receive Date: 20110211
  Receipt Date: 20131209
  Transmission Date: 20140711
  Serious: Yes (Hospitalization)
  Sender: FDA-Public Use
  Company Number: US-BAYER-2011-013460

PATIENT
  Age: 21 Year
  Sex: Female

DRUGS (3)
  1. YAZ [Suspect]
     Indication: CONTRACEPTION
     Dosage: UNK
     Route: 048
     Dates: start: 200710, end: 200810
  2. SYNTHROID [Concomitant]
     Indication: HYPOTHYROIDISM
  3. TOPAMAX [Concomitant]
     Indication: MIGRAINE

REACTIONS (2)
  - Cholelithiasis [None]
  - Cholecystitis [None]
